FAERS Safety Report 12424864 (Version 2)
Quarter: 2016Q2

REPORT INFORMATION
  Report Type: Report from Study
  Country: US (occurrence: US)
  Receive Date: 20160601
  Receipt Date: 20160614
  Transmission Date: 20160815
  Serious: No
  Sender: FDA-Public Use
  Company Number: US-PFIZER INC-2016279739

PATIENT

DRUGS (2)
  1. FLUOROURACIL. [Suspect]
     Active Substance: FLUOROURACIL
     Indication: COLORECTAL ADENOCARCINOMA
     Dosage: 600 MG/M2, CYCLIC (FOR 6 WEEKS)
     Route: 040
  2. CALCIUM FOLINATE [Suspect]
     Active Substance: LEUCOVORIN CALCIUM
     Indication: COLORECTAL ADENOCARCINOMA
     Dosage: 500 MG/M2, WEEKLY (2 HOUR INFUSION (FOR 6 WEEKS))
     Route: 041

REACTIONS (1)
  - No adverse event [Unknown]
